FAERS Safety Report 13904479 (Version 3)
Quarter: 2021Q3

REPORT INFORMATION
  Report Type: Spontaneous
  Country: US (occurrence: US)
  Receive Date: 20170825
  Receipt Date: 20210802
  Transmission Date: 20211014
  Serious: No
  Sender: FDA-Public Use
  Company Number: US-BIOGEN-2017BI00449557

PATIENT
  Sex: Female

DRUGS (1)
  1. PLEGRIDY [Suspect]
     Active Substance: PEGINTERFERON BETA-1A
     Indication: MULTIPLE SCLEROSIS
     Route: 058
     Dates: start: 20160404, end: 20170601

REACTIONS (3)
  - White blood cell count increased [Recovered/Resolved]
  - White blood cell count decreased [Recovered/Resolved]
  - Multiple sclerosis [Not Recovered/Not Resolved]
